FAERS Safety Report 9066883 (Version 1)
Quarter: 2013Q1

REPORT INFORMATION
  Report Type: Spontaneous
  Country: US (occurrence: US)
  Receive Date: 20130131
  Receipt Date: 20130131
  Transmission Date: 20140127
  Serious: No
  Sender: FDA-Public Use
  Company Number: US-ABBOTT-12P-163-1007867-00

PATIENT
  Sex: Female
  Weight: 61.29 kg

DRUGS (7)
  1. HUMIRA [Suspect]
     Indication: CROHN^S DISEASE
  2. PENTASA [Concomitant]
     Indication: CROHN^S DISEASE
  3. PROBIOTIC [Concomitant]
     Indication: CROHN^S DISEASE
  4. VITAMINS WITH CALCIUM [Concomitant]
     Indication: SUPPLEMENTATION THERAPY
  5. FISH OIL X [Concomitant]
     Indication: SUPPLEMENTATION THERAPY
  6. VITAMIN B12 [Concomitant]
     Indication: VITAMIN SUPPLEMENTATION
  7. VITAMIN D [Concomitant]
     Indication: VITAMIN SUPPLEMENTATION

REACTIONS (2)
  - Cough [Not Recovered/Not Resolved]
  - Pneumonia [Not Recovered/Not Resolved]
